FAERS Safety Report 25817342 (Version 1)
Quarter: 2025Q3

REPORT INFORMATION
  Report Type: Spontaneous
  Country: TR (occurrence: TR)
  Receive Date: 20250918
  Receipt Date: 20250918
  Transmission Date: 20251021
  Serious: Yes (Hospitalization)
  Sender: STRIDES
  Company Number: None

PATIENT
  Age: 42 Year
  Sex: Female
  Weight: 158 kg

DRUGS (9)
  1. IBUPROFEN [Suspect]
     Active Substance: IBUPROFEN
     Indication: Upper respiratory tract infection
     Route: 065
     Dates: start: 20240109, end: 20240113
  2. IBUPROFEN [Suspect]
     Active Substance: IBUPROFEN
     Indication: Condition aggravated
     Route: 065
     Dates: start: 20240113
  3. AMOXICILLIN\CLAVULANIC ACID [Suspect]
     Active Substance: AMOXICILLIN\CLAVULANIC ACID
     Indication: Upper respiratory tract infection
     Route: 065
     Dates: start: 20240113
  4. AMOXICILLIN\CLAVULANIC ACID [Suspect]
     Active Substance: AMOXICILLIN\CLAVULANIC ACID
     Indication: Condition aggravated
  5. CEFUROXIME [Suspect]
     Active Substance: CEFUROXIME
     Indication: Upper respiratory tract infection
     Route: 065
     Dates: start: 20240109, end: 20240113
  6. PSEUDOEPHEDRINE HYDROCHLORIDE [Suspect]
     Active Substance: PSEUDOEPHEDRINE HYDROCHLORIDE
     Indication: Upper respiratory tract infection
     Route: 065
     Dates: start: 20240113
  7. PSEUDOEPHEDRINE HYDROCHLORIDE [Suspect]
     Active Substance: PSEUDOEPHEDRINE HYDROCHLORIDE
     Indication: Condition aggravated
  8. CHLORPHENIRAMINE MALEATE [Suspect]
     Active Substance: CHLORPHENIRAMINE MALEATE
     Indication: Upper respiratory tract infection
     Route: 065
     Dates: start: 20240113
  9. CHLORPHENIRAMINE MALEATE [Suspect]
     Active Substance: CHLORPHENIRAMINE MALEATE
     Indication: Condition aggravated

REACTIONS (2)
  - Delusion of replacement [Recovering/Resolving]
  - Off label use [Unknown]

NARRATIVE: CASE EVENT DATE: 20240115
